FAERS Safety Report 9339225 (Version 3)
Quarter: 2013Q3

REPORT INFORMATION
  Report Type: Spontaneous
  Country: US (occurrence: None)
  Receive Date: 20130605
  Receipt Date: 20130806
  Transmission Date: 20140515
  Serious: Yes (Life-Threatening, Hospitalization, Other)
  Sender: FDA-Public Use
  Company Number: COR_00009_2013

PATIENT
  Age: 57 Year
  Sex: Female
  Weight: 92 kg

DRUGS (7)
  1. CARBOPLATIN [Suspect]
     Indication: HER-2 POSITIVE BREAST CANCER
     Dosage: AUC OF 5 DF
     Route: 042
  2. CARBOPLATIN [Suspect]
     Indication: OESTROGEN RECEPTOR POSITIVE BREAST CANCER
     Dosage: AUC OF 5 DF
     Route: 042
  3. CARBOPLATIN [Suspect]
     Indication: OFF LABEL USE
     Dosage: AUC OF 5 DF
     Route: 042
  4. DOCETAXEL [Suspect]
     Indication: HER-2 POSITIVE BREAST CANCER
     Route: 042
  5. DOCETAXEL [Suspect]
     Indication: OESTROGEN RECEPTOR POSITIVE BREAST CANCER
     Route: 042
  6. TRASTUZUMAB [Concomitant]
     Indication: HER-2 POSITIVE BREAST CANCER
     Route: 042
  7. TRASTUZUMAB [Concomitant]
     Indication: OESTROGEN RECEPTOR POSITIVE BREAST CANCER
     Route: 042

REACTIONS (8)
  - Thrombotic microangiopathy [None]
  - Renal failure acute [None]
  - Haemolysis [None]
  - Thrombocytopenia [None]
  - Dyspnoea exertional [None]
  - Fatigue [None]
  - Anaemia [None]
  - Haemolysis [None]
